FAERS Safety Report 11637383 (Version 1)
Quarter: 2015Q4

REPORT INFORMATION
  Report Type: Spontaneous
  Country: US (occurrence: US)
  Receive Date: 20151016
  Receipt Date: 20151016
  Transmission Date: 20160304
  Serious: No
  Sender: FDA-Public Use
  Company Number: US-ASTRAZENECA-2015SE96449

PATIENT
  Sex: Female
  Weight: 72.6 kg

DRUGS (1)
  1. BYDUREON [Suspect]
     Active Substance: EXENATIDE
     Indication: TYPE 2 DIABETES MELLITUS
     Dosage: 2 MG 4 COUNT VIAL, ONCE A WEEK
     Route: 058

REACTIONS (4)
  - Injection site pain [Unknown]
  - Injection site nodule [Unknown]
  - Intentional product misuse [Unknown]
  - Injection site extravasation [Unknown]
